FAERS Safety Report 11615401 (Version 1)
Quarter: 2015Q4

REPORT INFORMATION
  Report Type: Spontaneous
  Country: US (occurrence: None)
  Receive Date: 20151008
  Receipt Date: 20151008
  Transmission Date: 20160304
  Serious: No
  Sender: FDA-Public Use
  Company Number: None

PATIENT
  Age: 35 Year
  Sex: Female
  Weight: 76.66 kg

DRUGS (2)
  1. MULTI VITAMIN [Concomitant]
     Active Substance: VITAMINS
  2. TRANSDERM SCOP [Suspect]
     Active Substance: SCOPOLAMINE
     Indication: MOTION SICKNESS
     Dosage: 1 PATCH AS NEEDED APPLIED TO A SURFACE, USUALLY THE SKIN
     Route: 061
     Dates: start: 20151002, end: 20151005

REACTIONS (2)
  - Mydriasis [None]
  - Vision blurred [None]

NARRATIVE: CASE EVENT DATE: 20151005
